FAERS Safety Report 24738319 (Version 1)
Quarter: 2024Q4

REPORT INFORMATION
  Report Type: Spontaneous
  Country: PL (occurrence: PL)
  Receive Date: 20241216
  Receipt Date: 20241216
  Transmission Date: 20250115
  Serious: Yes (Other)
  Sender: FRESENIUS KABI
  Company Number: PL-ROCHE-10000146654

PATIENT
  Age: 70 Year
  Sex: Female
  Weight: 65 kg

DRUGS (9)
  1. PACLITAXEL [Suspect]
     Active Substance: PACLITAXEL
     Indication: Breast cancer metastatic
     Route: 042
     Dates: start: 20231127
  2. PERTUZUMAB\TRASTUZUMAB [Suspect]
     Active Substance: PERTUZUMAB\TRASTUZUMAB
     Indication: Breast cancer metastatic
     Dosage: DOSE ADMIN 1200 MG AND 600 MG. ON 30-OCT-2024, SHE START MOST RECENT DOSE OF STUDY DRUG PRIOR TO AE/
     Route: 058
     Dates: start: 20231127
  3. ONDANSETRON [Concomitant]
     Active Substance: ONDANSETRON
     Indication: Product used for unknown indication
     Dosage: GIVEN FOR PROPHYLAXIS IS YES?FOA: INJECTION
     Route: 042
     Dates: start: 20231127
  4. DEXAMETHASONE [Concomitant]
     Active Substance: DEXAMETHASONE
     Indication: Product used for unknown indication
     Dosage: GIVEN FOR PROPHYLAXIS IS YES?FOA: TABLET
     Route: 048
     Dates: start: 20231127
  5. CLEMASTIN [CLEMASTINE FUMARATE] [Concomitant]
     Indication: Product used for unknown indication
     Dosage: GIVEN FOR PROPHYLAXIS IS ?FOA: INJECTION
     Route: 042
     Dates: start: 20231127
  6. DEXAVEN [DEXAMETHASONE SODIUM PHOSPHATE] [Concomitant]
     Indication: Product used for unknown indication
     Dosage: GIVEN FOR PROPHYLAXIS IS YES?FOA: INJECTION
     Route: 042
     Dates: start: 20231127
  7. OMEPRAZOLE [Concomitant]
     Active Substance: OMEPRAZOLE
     Indication: Product used for unknown indication
     Dosage: GIVEN FOR PROPHYLAXIS IS YES?FOA: INJECTION
     Route: 042
     Dates: start: 20231127
  8. ESTAZOLAM [ESTAZOLAM] [Concomitant]
     Indication: Insomnia
     Dosage: DRUG DOSE FIRST ADMINISTERED IS 1 TABLET?GIVEN FOR PROPHYLAXIS IS YES?FOA: TABLET
     Route: 048
     Dates: start: 20240411
  9. LETROZOLE [Concomitant]
     Active Substance: LETROZOLE
     Indication: Hormone receptor positive breast cancer
     Dates: start: 20240403

REACTIONS (1)
  - Ejection fraction decreased [Not Recovered/Not Resolved]

NARRATIVE: CASE EVENT DATE: 20241127
